FAERS Safety Report 5099621-5 (Version None)
Quarter: 2006Q3

REPORT INFORMATION
  Report Type: 
  Country: None (occurrence: None)
  Receive Date: 20060906
  Receipt Date: 20060821
  Transmission Date: 20061208
  Serious: Yes (Other)
  Sender: FDA-Public Use
  Company Number: 2006097057

PATIENT
  Age: 65 Year
  Sex: Male
  Weight: 68 kg

DRUGS (5)
  1. LYRICA [Suspect]
     Indication: DRUG USE FOR UNKNOWN INDICATION
     Dosage: 150 MG (75 MG, 2 IN 1 D),
     Dates: end: 20060725
  2. ALL OTHER THERAPEUTIC PRODUCTS (ALL OTHER THERAPEUTIC PRODUCTS) [Concomitant]
  3. OFLOXACIN [Concomitant]
  4. ACETAMINOPHEN W/ PROPOXYPHENE HCL [Concomitant]
  5. ALVERINE CITRATE/SIMETICONE (ALVERINE CITRATE, SIMETICONE) [Concomitant]

REACTIONS (4)
  - DRUG INEFFECTIVE [None]
  - HYPERTENSION [None]
  - VISION BLURRED [None]
  - VISUAL DISTURBANCE [None]
